FAERS Safety Report 5312199-3 (Version None)
Quarter: 2007Q2

REPORT INFORMATION
  Report Type: 
  Country: None (occurrence: None)
  Receive Date: 20070430
  Receipt Date: 20060707
  Transmission Date: 20071010
  Serious: No
  Sender: FDA-Public Use
  Company Number: 2006UW14086

PATIENT
  Age: 42 Year
  Sex: Female
  Weight: 86.2 kg

DRUGS (3)
  1. NEXIUM [Suspect]
     Indication: GASTROOESOPHAGEAL REFLUX DISEASE
     Route: 048
     Dates: start: 20060522
  2. ZYRTEC [Concomitant]
  3. NASONEX [Concomitant]

REACTIONS (1)
  - ALOPECIA [None]
